FAERS Safety Report 16591637 (Version 1)
Quarter: 2019Q3

REPORT INFORMATION
  Report Type: Spontaneous
  Country: FR (occurrence: FR)
  Receive Date: 20190718
  Receipt Date: 20190718
  Transmission Date: 20191004
  Serious: Yes (Other)
  Sender: FDA-Public Use
  Company Number: FR-PFIZER INC-2019304055

PATIENT
  Sex: Female
  Weight: 50 kg

DRUGS (9)
  1. ENBREL [Suspect]
     Active Substance: ETANERCEPT
     Indication: SPONDYLITIS
     Dosage: 1 DF, WEEKLY
     Route: 058
     Dates: start: 20170503, end: 20170622
  2. IBUPROFENE BIOGARAN [Suspect]
     Active Substance: IBUPROFEN
     Route: 048
     Dates: start: 2016, end: 201710
  3. ACUPAN [Suspect]
     Active Substance: NEFOPAM HYDROCHLORIDE
     Route: 042
     Dates: start: 2016, end: 2017
  4. NEURONTIN [Suspect]
     Active Substance: GABAPENTIN
     Indication: SPONDYLITIS
     Dosage: UNK
     Route: 048
     Dates: start: 20110404
  5. NOVATREX (METHOTREXATE) [Suspect]
     Active Substance: METHOTREXATE SODIUM
     Indication: SPONDYLITIS
     Dosage: UNK
     Route: 048
     Dates: start: 20150602
  6. ACIDE FOLIQUE CCD [Suspect]
     Active Substance: FOLIC ACID
     Dosage: UNK
     Route: 048
     Dates: start: 20150602
  7. OMEPRAZOLE BIOGARAN [Suspect]
     Active Substance: OMEPRAZOLE
     Dosage: UNK
     Route: 048
     Dates: end: 20170622
  8. DILATRANE [THEOPHYLLINE] [Suspect]
     Active Substance: THEOPHYLLINE
     Dosage: UNK
     Route: 048
     Dates: start: 20170119, end: 2018
  9. NICOBION [Suspect]
     Active Substance: NIACINAMIDE
     Dosage: UNK
     Route: 048
     Dates: start: 20150602

REACTIONS (3)
  - Regurgitation [Not Recovered/Not Resolved]
  - Impaired gastric emptying [Not Recovered/Not Resolved]
  - Abdominal pain upper [Not Recovered/Not Resolved]

NARRATIVE: CASE EVENT DATE: 201705
